FAERS Safety Report 13716125 (Version 3)
Quarter: 2017Q3

REPORT INFORMATION
  Report Type: Report from Study
  Country: US (occurrence: US)
  Receive Date: 20170705
  Receipt Date: 20170801
  Transmission Date: 20171127
  Serious: Yes (Death, Other)
  Sender: FDA-Public Use
  Company Number: US-GILEAD-2017-0281437

PATIENT
  Age: 63 Year
  Sex: Female

DRUGS (3)
  1. SILDENAFIL CITRATE. [Concomitant]
     Active Substance: SILDENAFIL CITRATE
  2. AMBRISENTAN [Suspect]
     Active Substance: AMBRISENTAN
     Indication: PULMONARY HYPERTENSION
  3. AMBRISENTAN [Suspect]
     Active Substance: AMBRISENTAN
     Indication: PULMONARY VENO-OCCLUSIVE DISEASE
     Dosage: 10 MG, QD
     Route: 065
     Dates: start: 20160317

REACTIONS (1)
  - Death [Fatal]

NARRATIVE: CASE EVENT DATE: 20170628
